FAERS Safety Report 5135872-9 (Version None)
Quarter: 2006Q4

REPORT INFORMATION
  Report Type: 
  Country: None (occurrence: None)
  Receive Date: 20061020
  Receipt Date: 20061009
  Transmission Date: 20070319
  Serious: Yes (Other)
  Sender: FDA-Public Use
  Company Number: 2006BH013869

PATIENT
  Age: 60 Year
  Sex: Male
  Weight: 124 kg

DRUGS (1)
  1. EXTRANEAL [Suspect]
     Indication: RENAL FAILURE CHRONIC
     Dosage: 2000 ML; EVERY DAY; IP
     Route: 033
     Dates: start: 20050830

REACTIONS (2)
  - DEVICE INTERACTION [None]
  - HYPOGLYCAEMIA [None]
